FAERS Safety Report 19093488 (Version 1)
Quarter: 2021Q2

REPORT INFORMATION
  Report Type: Spontaneous
  Country: FR (occurrence: FR)
  Receive Date: 20210405
  Receipt Date: 20210405
  Transmission Date: 20210717
  Serious: Yes (Death, Other)
  Sender: FDA-Public Use
  Company Number: FR-TEVA-2021-FR-1895921

PATIENT
  Age: 86 Year
  Sex: Male
  Weight: 100 kg

DRUGS (11)
  1. ALPRAZOLAM. [Suspect]
     Active Substance: ALPRAZOLAM
     Indication: ANXIETY
     Dosage: 0.5MG
     Route: 048
     Dates: start: 20210211, end: 20210212
  2. MORPHINE [Suspect]
     Active Substance: MORPHINE
     Indication: PAIN
     Dosage: 1MG
     Route: 042
     Dates: start: 20210212, end: 20210213
  3. ALLOPURINOL. [Concomitant]
     Active Substance: ALLOPURINOL
     Indication: GOUT
     Dosage: 100MG
     Route: 048
     Dates: start: 20210211, end: 20210212
  4. PANTOPRAZOLE [Concomitant]
     Active Substance: PANTOPRAZOLE
     Dosage: 80MG
     Route: 042
     Dates: start: 20210211
  5. CEFTRIAXONE BASE [Concomitant]
     Active Substance: CEFTRIAXONE
     Indication: INFECTION
     Dosage: 1GM
     Route: 042
     Dates: start: 20210212, end: 20210216
  6. MIANSERINE (CHLORHYDRATE DE) [Concomitant]
     Active Substance: MIANSERIN HYDROCHLORIDE
     Indication: MIXED ANXIETY AND DEPRESSIVE DISORDER
     Dosage: 30MG
     Route: 048
     Dates: start: 20210211, end: 20210211
  7. FUMAFER [Concomitant]
     Active Substance: FERROUS FUMARATE
     Indication: MINERAL SUPPLEMENTATION
     Dosage: 1DF
     Route: 048
     Dates: start: 20210212, end: 20210212
  8. TRAMADOL BASE [Suspect]
     Active Substance: TRAMADOL
     Indication: PAIN
     Dosage: 150MG
     Route: 048
     Dates: start: 20210211, end: 20210212
  9. LEVOTHYROX 100 MICROGRAMMES, COMPRIME SECABLE [Concomitant]
     Active Substance: LEVOTHYROXINE
     Indication: HYPOTHYROIDISM
     Dosage: 1DF,SCORED
     Route: 048
     Dates: start: 20210212, end: 20210212
  10. FUROSEMIDE. [Concomitant]
     Active Substance: FUROSEMIDE
     Indication: HYPERTENSION
     Dosage: 500MG
     Route: 048
     Dates: start: 20210212, end: 20210212
  11. ABASAGLAR 100 UNITES/ML, SOLUTION INJECTABLE EN STYLO PREREMPLI [Concomitant]
     Active Substance: INSULIN GLARGINE
     Dosage: 20IU
     Route: 058
     Dates: start: 20210212, end: 20210212

REACTIONS (2)
  - Dependence on oxygen therapy [Recovered/Resolved]
  - Coma [Recovered/Resolved]

NARRATIVE: CASE EVENT DATE: 20210213
